FAERS Safety Report 6802628-8 (Version None)
Quarter: 2010Q2

REPORT INFORMATION
  Report Type: 
  Country: None (occurrence: None)
  Receive Date: 20100628
  Receipt Date: 20100618
  Transmission Date: 20101027
  Serious: Yes (Hospitalization, Other)
  Sender: FDA-Public Use
  Company Number: US-JNJFOC-20100606139

PATIENT
  Sex: Female
  Weight: 71.22 kg

DRUGS (18)
  1. DURAGESIC-100 [Suspect]
     Indication: COMPLEX REGIONAL PAIN SYNDROME
     Dosage: 50 UG/HR + 25 UG/HR
     Route: 062
  2. DURAGESIC-100 [Suspect]
     Indication: OSTEONECROSIS
     Dosage: 50 UG/HR + 25 UG/HR
     Route: 062
  3. SANDOZ FENTANYL TRANSDERMAL SYSTEM [Suspect]
     Indication: COMPLEX REGIONAL PAIN SYNDROME
     Dosage: 50 UG/HR + 25 UG/HR
     Route: 062
  4. SANDOZ FENTANYL TRANSDERMAL SYSTEM [Suspect]
     Indication: OSTEONECROSIS
     Dosage: 50 UG/HR + 25 UG/HR
     Route: 062
  5. SANDOZ FENTANYL TRANSDERMAL SYSTEM [Suspect]
     Dosage: 50 UG/HR + 25 UG/HR
     Route: 062
  6. SANDOZ FENTANYL TRANSDERMAL SYSTEM [Suspect]
     Dosage: 50 UG/HR + 25 UG/HR
     Route: 062
  7. COUMADIN [Concomitant]
     Indication: THROMBOSIS
     Route: 048
  8. PLAQUENIL [Concomitant]
     Indication: SYSTEMIC LUPUS ERYTHEMATOSUS
     Route: 048
  9. FLUTICASONE [Concomitant]
     Indication: SINUS DISORDER
     Route: 045
  10. ZANAFLEX [Concomitant]
     Indication: MUSCLE SPASMS
     Route: 048
  11. METHADONE [Concomitant]
     Indication: PAIN
     Route: 048
  12. POTASSIUM [Concomitant]
     Indication: ELECTROLYTE SUBSTITUTION THERAPY
     Route: 048
  13. PENTASA [Concomitant]
     Indication: CROHN'S DISEASE
     Route: 048
  14. LIDODERM [Concomitant]
     Indication: PAIN
     Route: 065
  15. PHENERGAN [Concomitant]
     Indication: NAUSEA
     Route: 048
  16. HYOSCYAMINE [Concomitant]
     Indication: GASTROINTESTINAL PAIN
     Route: 048
  17. SINGULAIR [Concomitant]
     Indication: MULTIPLE ALLERGIES
     Route: 048
  18. PREVACID [Concomitant]
     Indication: GASTROINTESTINAL DISORDER
     Route: 048

REACTIONS (13)
  - APPLICATION SITE EROSION [None]
  - APPLICATION SITE PAIN [None]
  - CARDIAC FLUTTER [None]
  - CHEST PAIN [None]
  - COMPLEX REGIONAL PAIN SYNDROME [None]
  - DRUG ADMINISTERED AT INAPPROPRIATE SITE [None]
  - DYSKINESIA [None]
  - EYE PAIN [None]
  - GASTROINTESTINAL DISORDER [None]
  - PAIN IN EXTREMITY [None]
  - SINUS CONGESTION [None]
  - URTICARIA [None]
  - WRONG TECHNIQUE IN DRUG USAGE PROCESS [None]
